FAERS Safety Report 10410996 (Version 2)
Quarter: 2015Q1

REPORT INFORMATION
  Report Type: Spontaneous
  Country: US (occurrence: None)
  Receive Date: 20140822
  Receipt Date: 20150319
  Transmission Date: 20150720
  Serious: Yes (Other)
  Sender: FDA-Public Use
  Company Number: 2142576

PATIENT
  Age: 64 Year
  Sex: Male

DRUGS (2)
  1. PHENYLEPHRINE HCL [Suspect]
     Active Substance: PHENYLEPHRINE HYDROCHLORIDE
     Indication: PRODUCT USED FOR UNKNOWN INDICATION
     Dosage: NOT REPORTED, NOT REPORTED, VIA PUMP, OTHER?
     Route: 050
     Dates: start: 20131220
  2. NITROGLYCERIN. [Suspect]
     Active Substance: NITROGLYCERIN
     Indication: PRODUCT USED FOR UNKNOWN INDICATION
     Dosage: NOT REPORTED, NOT REPORTED, UNKNOWN, INTRAVENOUS DRIP?
     Route: 041
     Dates: start: 20131220

REACTIONS (4)
  - Blood pressure systolic decreased [None]
  - Device malfunction [None]
  - Incorrect dose administered by device [None]
  - Blood pressure systolic increased [None]

NARRATIVE: CASE EVENT DATE: 20131220
